FAERS Safety Report 21351094 (Version 1)
Quarter: 2022Q3

REPORT INFORMATION
  Report Type: Report from Study
  Country: FR (occurrence: FR)
  Receive Date: 20220919
  Receipt Date: 20220919
  Transmission Date: 20221027
  Serious: Yes (Disabling)
  Sender: FDA-Public Use
  Company Number: FR-PFIZER INC-PV202200059645

PATIENT
  Age: 83 Year
  Sex: Female

DRUGS (9)
  1. TALAZOPARIB [Suspect]
     Active Substance: TALAZOPARIB
     Indication: Peritoneal mesothelioma malignant
     Dosage: 0.75 MG, 1X/DAY
     Route: 048
     Dates: start: 20220505, end: 20220822
  2. APIXABAN [Concomitant]
     Active Substance: APIXABAN
     Dosage: 5 MG, 2X/DAY (1-0-1)
  3. METFORMIN [Concomitant]
     Active Substance: METFORMIN HYDROCHLORIDE
     Dosage: 500 MG, 2X/DAY (1-0-1)
  4. FELODIPINE [Concomitant]
     Active Substance: FELODIPINE
     Dosage: 5 MG, 1X/DAY (0-0-1)
  5. NITROGLYCERIN [Concomitant]
     Active Substance: NITROGLYCERIN
     Dosage: 5 MG, 1X/DAY (0-0-1)
  6. CAPTOPRIL [Concomitant]
     Active Substance: CAPTOPRIL
     Dosage: 50 MG, 1X/DAY(1-0-0)
  7. PROPRANOLOL [Concomitant]
     Active Substance: PROPRANOLOL HYDROCHLORIDE
     Dosage: 0.5 DF, 2X/DAY(0.5-0-0.5)
  8. SIMVASTATIN [Concomitant]
     Active Substance: SIMVASTATIN
     Dosage: 20 MG, 1X/DAY (0-0-1)
  9. HYDROCHLOROTHIAZIDE [Concomitant]
     Active Substance: HYDROCHLOROTHIAZIDE
     Dosage: 25 MG, 1X/DAY(1-0-0)

REACTIONS (1)
  - Atrioventricular block second degree [Not Recovered/Not Resolved]

NARRATIVE: CASE EVENT DATE: 20220822
